FAERS Safety Report 9918803 (Version 2)
Quarter: 2014Q2

REPORT INFORMATION
  Report Type: Spontaneous
  Country: DE (occurrence: DE)
  Receive Date: 20140224
  Receipt Date: 20140513
  Transmission Date: 20141212
  Serious: No
  Sender: FDA-Public Use
  Company Number: DE-JNJFOC-20140211581

PATIENT
  Age: 36 Year
  Sex: Female

DRUGS (2)
  1. XARELTO [Suspect]
     Indication: CAROTID ARTERY THROMBOSIS
     Route: 048
  2. LYRICA [Concomitant]
     Route: 065

REACTIONS (2)
  - Off label use [Unknown]
  - Oedema peripheral [Unknown]
